FAERS Safety Report 6420004-7 (Version None)
Quarter: 2009Q4

REPORT INFORMATION
  Report Type: 
  Country: None (occurrence: None)
  Receive Date: 20091029
  Receipt Date: 20090701
  Transmission Date: 20100525
  Serious: Yes (Other)
  Sender: FDA-Public Use
  Company Number: US-BAYER-200920298NA

PATIENT
  Age: 38 Year
  Sex: Female
  Weight: 58 kg

DRUGS (11)
  1. MAGNEVIST [Suspect]
     Indication: NUCLEAR MAGNETIC RESONANCE IMAGING BRAIN
     Route: 042
     Dates: start: 20070212, end: 20070212
  2. MAGNEVIST [Suspect]
     Route: 042
     Dates: start: 20070426, end: 20070426
  3. MAGNEVIST [Suspect]
     Dates: start: 20061215, end: 20061215
  4. OMNISCAN [Suspect]
     Indication: NUCLEAR MAGNETIC RESONANCE IMAGING
  5. LISINOPRIL [Concomitant]
  6. PROCARDIA [Concomitant]
  7. EPOGEN [Concomitant]
  8. CLONIDINE [Concomitant]
  9. RENAGEL [Concomitant]
  10. ROCALTROL [Concomitant]
  11. POTASSIUM CHLORIDE [Concomitant]

REACTIONS (11)
  - DRY SKIN [None]
  - HYPOAESTHESIA [None]
  - ICHTHYOSIS ACQUIRED [None]
  - NEPHROGENIC SYSTEMIC FIBROSIS [None]
  - OEDEMA PERIPHERAL [None]
  - PAIN IN EXTREMITY [None]
  - PIGMENTATION DISORDER [None]
  - PRURITUS [None]
  - SKIN DISORDER [None]
  - SKIN HYPERTROPHY [None]
  - SKIN INDURATION [None]
